FAERS Safety Report 4999667-9 (Version None)
Quarter: 2006Q2

REPORT INFORMATION
  Report Type: 
  Country: None (occurrence: None)
  Receive Date: 20060511
  Receipt Date: 20060504
  Transmission Date: 20061013
  Serious: Yes (Disabling)
  Sender: FDA-Public Use
  Company Number: US-MERCK-0605USA01219

PATIENT
  Sex: Male

DRUGS (1)
  1. VIOXX [Suspect]
     Route: 048
     Dates: start: 19990501, end: 20000801

REACTIONS (1)
  - INJURY [None]
